FAERS Safety Report 12432361 (Version 1)
Quarter: 2016Q2

REPORT INFORMATION
  Report Type: Report from Study
  Country: BR (occurrence: BR)
  Receive Date: 20160603
  Receipt Date: 20160603
  Transmission Date: 20160815
  Serious: Yes (Other)
  Sender: FDA-Public Use
  Company Number: PHHY2016BR075455

PATIENT
  Sex: Female
  Weight: 70 kg

DRUGS (7)
  1. GLIVEC [Suspect]
     Active Substance: IMATINIB MESYLATE
     Dosage: UNK
     Route: 065
     Dates: start: 200902
  2. AD TIL [Concomitant]
     Indication: HYPERTENSION
     Route: 065
  3. GLIVEC [Suspect]
     Active Substance: IMATINIB MESYLATE
     Indication: CHRONIC MYELOID LEUKAEMIA
     Dosage: UNK
     Route: 065
     Dates: start: 20050518
  4. RIBAVIRIN. [Concomitant]
     Active Substance: RIBAVIRIN
     Indication: PROPHYLAXIS
     Route: 065
  5. INTERFERON [Suspect]
     Active Substance: INTERFERON
     Indication: PROPHYLAXIS
     Route: 065
  6. IMATINIB [Suspect]
     Active Substance: IMATINIB
     Indication: CHRONIC MYELOID LEUKAEMIA
     Dosage: 400 MG (AFTER LUNCH), QD
     Route: 048
  7. INTERFERON [Suspect]
     Active Substance: INTERFERON
     Indication: HAEMOGLOBIN DECREASED

REACTIONS (29)
  - Arthralgia [Not Recovered/Not Resolved]
  - Exostosis [Unknown]
  - Feeding disorder [Unknown]
  - Viral infection [Unknown]
  - Dizziness [Unknown]
  - Weight increased [Unknown]
  - Malaise [Unknown]
  - Musculoskeletal pain [Unknown]
  - Spinal pain [Unknown]
  - Neck pain [Unknown]
  - Muscular weakness [Unknown]
  - Weight decreased [Unknown]
  - Gait disturbance [Unknown]
  - Body height decreased [Unknown]
  - White blood cell count decreased [Unknown]
  - Alopecia [Recovered/Resolved]
  - Fatigue [Unknown]
  - Hepatitis C [Recovering/Resolving]
  - Osteoporosis [Unknown]
  - Blister [Unknown]
  - Asthenia [Unknown]
  - Spinal fracture [Unknown]
  - Stress [Unknown]
  - Hypersensitivity [Unknown]
  - Pain in extremity [Unknown]
  - Anxiety [Unknown]
  - Blood pressure increased [Unknown]
  - Osteopenia [Unknown]
  - Dyspnoea [Unknown]
